FAERS Safety Report 5759254-1 (Version None)
Quarter: 2008Q2

REPORT INFORMATION
  Report Type: 
  Country: None (occurrence: None)
  Receive Date: 20080604
  Receipt Date: 20080527
  Transmission Date: 20081010
  Serious: Yes (Hospitalization)
  Sender: FDA-Public Use
  Company Number: US-GILEAD-2008-0016589

PATIENT
  Sex: Male
  Weight: 79.45 kg

DRUGS (14)
  1. AMBRISENTAN [Suspect]
     Indication: PULMONARY ARTERIAL HYPERTENSION
     Route: 048
     Dates: start: 20070619
  2. AMBRISENTAN [Suspect]
     Route: 048
     Dates: start: 20070309, end: 20070618
  3. FERROUS SULFATE TAB [Concomitant]
     Indication: ANAEMIA
     Route: 048
  4. POTASSIUM CHLORIDE [Concomitant]
     Indication: HYPOKALAEMIA
     Route: 048
  5. SILDENAFIL CITRATE [Concomitant]
     Indication: PULMONARY HYPERTENSION
     Route: 048
     Dates: start: 20070927, end: 20071001
  6. SILDENAFIL CITRATE [Concomitant]
     Route: 048
     Dates: start: 20071001
  7. TORSEMIDE [Concomitant]
     Indication: FLUID RETENTION
     Route: 048
  8. TORSEMIDE [Concomitant]
     Indication: PULMONARY ARTERIAL HYPERTENSION
  9. TORSEMIDE [Concomitant]
     Indication: RIGHT VENTRICULAR FAILURE
  10. WARFARIN SODIUM [Concomitant]
     Route: 048
  11. WARFARIN SODIUM [Concomitant]
     Route: 048
  12. DIGOXIN [Concomitant]
     Route: 048
     Dates: end: 20071001
  13. METOLAZONE [Concomitant]
     Indication: FLUID RETENTION
     Route: 048
  14. OXYGEN [Concomitant]

REACTIONS (1)
  - CARDIAC FAILURE [None]
